FAERS Safety Report 17362401 (Version 1)
Quarter: 2020Q1

REPORT INFORMATION
  Report Type: Spontaneous
  Country: US (occurrence: US)
  Receive Date: 20200201
  Receipt Date: 20200201
  Transmission Date: 20200409
  Serious: No
  Sender: FDA-Public Use
  Company Number: None

PATIENT
  Age: 24 Year
  Sex: Female
  Weight: 65.25 kg

DRUGS (11)
  1. OMEGA 3 [Concomitant]
     Active Substance: OMEGA-3 FATTY ACIDS
  2. PREDNISONE 20MG [Suspect]
     Active Substance: PREDNISONE
     Indication: ALLERGY TEST
     Dates: start: 20190722, end: 20190914
  3. UVB PHOTOLIGHT THERAPY [Concomitant]
  4. DANDELION TEA [Concomitant]
     Active Substance: TARAXACUM OFFICINALE ROOT
  5. GLUTAMINE [Concomitant]
     Active Substance: GLUTAMINE
  6. VITAMIN C [Concomitant]
     Active Substance: ASCORBIC ACID
  7. VITAMIN D [Concomitant]
     Active Substance: VITAMIN D NOS
  8. CLOBETASOL PROPIONATE 0.05% [Suspect]
     Active Substance: CLOBETASOL PROPIONATE
     Indication: ECZEMA
     Dates: start: 20090101, end: 20190913
  9. MAGNESIUM [Concomitant]
     Active Substance: MAGNESIUM
  10. PREDNISONE 20MG [Suspect]
     Active Substance: PREDNISONE
     Indication: HOT FLUSH
     Dates: start: 20190722, end: 20190914
  11. ZYRTEC [Concomitant]
     Active Substance: CETIRIZINE HYDROCHLORIDE

REACTIONS (10)
  - Vision blurred [None]
  - Hot flush [None]
  - Facial pain [None]
  - Rash macular [None]
  - Skin exfoliation [None]
  - Pruritus [None]
  - Swelling face [None]
  - Rash [None]
  - Fatigue [None]
  - Skin weeping [None]

NARRATIVE: CASE EVENT DATE: 20190828
